FAERS Safety Report 18051673 (Version 5)
Quarter: 2021Q1

REPORT INFORMATION
  Report Type: Report from Study
  Country: None (occurrence: US)
  Receive Date: 20200722
  Receipt Date: 20210319
  Transmission Date: 20210419
  Serious: Yes (Other)
  Sender: FDA-Public Use
  Company Number: US-ABBVIE-20K-163-3489573-00

PATIENT
  Age: 83 Year
  Sex: Male
  Weight: 83.54 kg

DRUGS (8)
  1. OLMESARTAN [Concomitant]
     Active Substance: OLMESARTAN
     Indication: BLOOD PRESSURE MEASUREMENT
  2. PROMACTA [Concomitant]
     Active Substance: ELTROMBOPAG OLAMINE
     Indication: CHRONIC LYMPHOCYTIC LEUKAEMIA
     Route: 048
     Dates: start: 20200113
  3. PROMACTA [Concomitant]
     Active Substance: ELTROMBOPAG OLAMINE
     Indication: PLATELET COUNT
  4. VENCLEXTA [Suspect]
     Active Substance: VENETOCLAX
     Route: 048
  5. VENCLEXTA [Suspect]
     Active Substance: VENETOCLAX
     Indication: CHRONIC LYMPHOCYTIC LEUKAEMIA
     Route: 048
     Dates: start: 20200113, end: 202002
  6. VENCLEXTA [Suspect]
     Active Substance: VENETOCLAX
     Route: 048
     Dates: start: 202002
  7. AMLODIPINE [Concomitant]
     Active Substance: AMLODIPINE BESYLATE
     Indication: BLOOD PRESSURE MEASUREMENT
  8. VALACYCLOVIR [Concomitant]
     Active Substance: VALACYCLOVIR HYDROCHLORIDE
     Indication: INFECTION

REACTIONS (16)
  - Blister [Recovered/Resolved]
  - Neck pain [Unknown]
  - Rash [Unknown]
  - Diarrhoea [Unknown]
  - Skin cancer [Recovered/Resolved]
  - Prostatomegaly [Not Recovered/Not Resolved]
  - Insomnia [Unknown]
  - Arthralgia [Unknown]
  - Skin cancer [Unknown]
  - Constipation [Not Recovered/Not Resolved]
  - Myalgia [Unknown]
  - Parosmia [Not Recovered/Not Resolved]
  - Muscle spasms [Not Recovered/Not Resolved]
  - Renal cyst [Recovering/Resolving]
  - Bladder diverticulum [Recovering/Resolving]
  - Rash [Not Recovered/Not Resolved]

NARRATIVE: CASE EVENT DATE: 2020
